FAERS Safety Report 22071935 (Version 2)
Quarter: 2023Q2

REPORT INFORMATION
  Report Type: Report from Study
  Country: BR (occurrence: BR)
  Receive Date: 20230307
  Receipt Date: 20230622
  Transmission Date: 20230722
  Serious: Yes (Other)
  Sender: FDA-Public Use
  Company Number: BR-JNJFOC-20230308607

PATIENT
  Age: 34 Year
  Sex: Female
  Weight: 74 kg

DRUGS (3)
  1. SIMPONI [Suspect]
     Active Substance: GOLIMUMAB
     Indication: Rheumatoid arthritis
     Route: 058
     Dates: start: 20220620, end: 202210
  2. SIMPONI [Suspect]
     Active Substance: GOLIMUMAB
  3. METRONIDAZOLE [Concomitant]
     Active Substance: METRONIDAZOLE

REACTIONS (3)
  - Uterine neoplasm [Unknown]
  - Post procedural infection [Not Recovered/Not Resolved]
  - Arthralgia [Not Recovered/Not Resolved]

NARRATIVE: CASE EVENT DATE: 20230101
